FAERS Safety Report 8162072-0 (Version None)
Quarter: 2012Q1

REPORT INFORMATION
  Report Type: 
  Country: None (occurrence: None)
  Receive Date: 20120224
  Receipt Date: 20110809
  Transmission Date: 20120608
  Serious: No
  Sender: FDA-Public Use
  Company Number: US-BRISTOL-MYERS SQUIBB COMPANY-15849482

PATIENT
  Age: 45 Year
  Sex: Female

DRUGS (17)
  1. CRESTOR [Concomitant]
  2. PAROXETINE [Concomitant]
  3. PLAVIX [Suspect]
  4. METFORMIN HCL [Suspect]
     Indication: DIABETES MELLITUS INADEQUATE CONTROL
     Dosage: 1000MG BID; START DATE:OVER A YEAR
     Route: 048
  5. ASPIRIN [Concomitant]
  6. BUPROPION HCL [Concomitant]
  7. BUSPIRONE HCL [Concomitant]
  8. FERROUS SULFATE TAB [Concomitant]
     Dosage: 1DF=5 GRAIN
  9. FLUTICASONE PROPIONATE [Concomitant]
     Dosage: NASAL SPRAY
     Route: 045
  10. CYANOCOBALAMIN [Concomitant]
  11. ADVAIR DISKUS 100/50 [Concomitant]
  12. ALBUTEROL [Concomitant]
  13. IMDUR [Concomitant]
  14. LEVOTHYROXINE SODIUM [Concomitant]
  15. SINGULAIR [Concomitant]
  16. INSULIN HUMULIN [Suspect]
     Dosage: 1DF=500UNITS/ML HUMULIN REGULAR
  17. FOLIC ACID [Concomitant]

REACTIONS (1)
  - ADVERSE EVENT [None]
